FAERS Safety Report 4334143-8 (Version None)
Quarter: 2004Q2

REPORT INFORMATION
  Report Type: 
  Country: None (occurrence: None)
  Receive Date: 20040402
  Receipt Date: 20040325
  Transmission Date: 20050107
  Serious: No
  Sender: FDA-Public Use
  Company Number: 2004-03-1807

PATIENT
  Age: 49 Year
  Sex: 0

DRUGS (2)
  1. REBETOL [Suspect]
     Dosage: 200 MG ORAL
     Route: 048
  2. PEGASYS [Suspect]

REACTIONS (1)
  - LIPOSARCOMA [None]
